FAERS Safety Report 8348940-5 (Version None)
Quarter: 2012Q2

REPORT INFORMATION
  Report Type: 
  Country: None (occurrence: None)
  Receive Date: 20120510
  Receipt Date: 20120501
  Transmission Date: 20120825
  Serious: Yes (Death, Hospitalization)
  Sender: FDA-Public Use
  Company Number: US-PAR PHARMACEUTICAL, INC-2012SCPR004355

PATIENT

DRUGS (1)
  1. HYDROXYUREA [Suspect]
     Indication: SICKLE CELL ANAEMIA
     Dosage: 1.5 TO 2 GRAMS, / DAY
     Route: 065

REACTIONS (6)
  - SUBARACHNOID HAEMORRHAGE [None]
  - DEATH [None]
  - SEPSIS [None]
  - ACUTE MYELOID LEUKAEMIA [None]
  - MYELODYSPLASTIC SYNDROME [None]
  - RESPIRATORY FAILURE [None]
